FAERS Safety Report 6609855-3 (Version None)
Quarter: 2010Q1

REPORT INFORMATION
  Report Type: 
  Country: None (occurrence: None)
  Receive Date: 20100302
  Receipt Date: 20100219
  Transmission Date: 20100710
  Serious: Yes (Other)
  Sender: FDA-Public Use
  Company Number: PHHY2010JP07585

PATIENT
  Age: 60 Year
  Sex: Male

DRUGS (7)
  1. SIMULECT [Suspect]
     Indication: RENAL TRANSPLANT
  2. TACROLIMUS [Concomitant]
     Dosage: 1.5 MG PER DAY
  3. TACROLIMUS [Concomitant]
     Dosage: 1 MG PER DAY
  4. MYCOPHENOLATE MOFETIL [Concomitant]
     Dosage: 1.25 MG PER DAY
  5. MYCOPHENOLATE MOFETIL [Concomitant]
     Dosage: 1 GRAM PER DAY
  6. METHYLPREDNISOLONE [Concomitant]
  7. RITUXIMAB [Concomitant]

REACTIONS (8)
  - CYTOMEGALOVIRUS INFECTION [None]
  - DIABETES MELLITUS [None]
  - IGA NEPHROPATHY [None]
  - RENAL IMPAIRMENT [None]
  - RENAL TUBULAR DISORDER [None]
  - TUBULOINTERSTITIAL NEPHRITIS [None]
  - URINARY TRACT INFECTION [None]
  - VIRAL HAEMORRHAGIC CYSTITIS [None]
